FAERS Safety Report 9404993 (Version 1)
Quarter: 2013Q3

REPORT INFORMATION
  Report Type: Spontaneous
  Country: US (occurrence: US)
  Receive Date: 20130717
  Receipt Date: 20130717
  Transmission Date: 20140515
  Serious: No
  Sender: FDA-Public Use
  Company Number: US-TEVA-418569USA

PATIENT
  Age: 51 Year
  Sex: Female
  Weight: 78.09 kg

DRUGS (7)
  1. PLAN B ONE-STEP [Suspect]
     Indication: POST COITAL CONTRACEPTION
     Dosage: 1.5 MILLIGRAM DAILY;
     Route: 048
     Dates: start: 20130705, end: 20130705
  2. ATENOLOL [Concomitant]
     Indication: HYPERTENSION
  3. NORTRIPTYLINE [Concomitant]
     Indication: ANXIETY
  4. XANAX [Concomitant]
     Indication: ANXIETY
  5. ASPIRIN [Concomitant]
     Indication: PROPHYLAXIS
  6. VITAMIN C [Concomitant]
     Indication: MEDICAL DIET
  7. FISH OIL [Concomitant]
     Indication: MEDICAL DIET

REACTIONS (1)
  - Menstruation irregular [Not Recovered/Not Resolved]
